FAERS Safety Report 9167430 (Version 1)
Quarter: 2013Q1

REPORT INFORMATION
  Report Type: Spontaneous
  Country: US (occurrence: US)
  Receive Date: 20130318
  Receipt Date: 20130318
  Transmission Date: 20140127
  Serious: No
  Sender: FDA-Public Use
  Company Number: US-009507513-1303USA002167

PATIENT
  Age: 5 None
  Sex: Female

DRUGS (1)
  1. NASONEX [Suspect]
     Indication: ADENOIDAL HYPERTROPHY
     Dosage: ONE SPRAY IN EACH NOSTRIL, ONCE DAILY
     Route: 045
     Dates: start: 20130212

REACTIONS (4)
  - Dyspnoea [Unknown]
  - Drug dose omission [Unknown]
  - Off label use [Unknown]
  - Product quality issue [Unknown]
